FAERS Safety Report 8519588-4 (Version None)
Quarter: 2012Q3

REPORT INFORMATION
  Report Type: 
  Country: None (occurrence: None)
  Receive Date: 20120718
  Receipt Date: 20120713
  Transmission Date: 20120928
  Serious: Yes (Death, Hospitalization)
  Sender: FDA-Public Use
  Company Number: US-GILEAD-2012-0058127

PATIENT
  Sex: Female

DRUGS (1)
  1. LETAIRIS [Suspect]
     Indication: PULMONARY HYPERTENSION
     Dosage: 5 MG, UNK
     Route: 048
     Dates: start: 20120306, end: 20120624

REACTIONS (6)
  - CARDIAC ARREST [None]
  - PULMONARY ARTERIAL HYPERTENSION [None]
  - COMA [None]
  - DIALYSIS [None]
  - FLUID OVERLOAD [None]
  - CARDIAC ABLATION [None]
